FAERS Safety Report 17223396 (Version 1)
Quarter: 2020Q1

REPORT INFORMATION
  Report Type: Spontaneous
  Country: FR (occurrence: FR)
  Receive Date: 20200102
  Receipt Date: 20200102
  Transmission Date: 20200409
  Serious: Yes (Other)
  Sender: FDA-Public Use
  Company Number: FR-AUROBINDO-AUR-APL-2019-042385

PATIENT
  Age: 62 Year
  Sex: Male

DRUGS (2)
  1. ALPRAZOLAM. [Suspect]
     Active Substance: ALPRAZOLAM
     Indication: PRODUCT USED FOR UNKNOWN INDICATION
     Dosage: 1, 1 TOTAL
     Route: 048
     Dates: start: 20180829, end: 20180829
  2. PARACETAMOL [Suspect]
     Active Substance: ACETAMINOPHEN
     Indication: PRODUCT USED FOR UNKNOWN INDICATION
     Dosage: 11 GRAM, 1 TOTAL
     Route: 048
     Dates: start: 20180829, end: 20180829

REACTIONS (5)
  - Overdose [Unknown]
  - Miosis [Recovered/Resolved]
  - Suicide attempt [Unknown]
  - Somnolence [Recovered/Resolved]
  - Toxicity to various agents [Recovered/Resolved]

NARRATIVE: CASE EVENT DATE: 20180829
